FAERS Safety Report 8643079 (Version 3)
Quarter: 2012Q4

REPORT INFORMATION
  Report Type: 
  Country: US (occurrence: US)
  Receive Date: 20120629
  Receipt Date: 20120914
  Transmission Date: 20130627
  Serious: Yes (Other)
  Sender: FDA-Public Use
  Company Number: US-PFIZER INC-2012152272

PATIENT
  Age: 68 Year
  Sex: Female

DRUGS (4)
  1. LYRICA [Suspect]
     Indication: FIBROMYALGIA
     Dosage: UNK
     Route: 048
     Dates: start: 2006
  2. PRAVACHOL [Concomitant]
     Indication: HYPERLIPIDAEMIA
     Dosage: 40 mg, daily
  3. ZETIA [Concomitant]
     Indication: HYPERLIPIDAEMIA
     Dosage: 10 mg, daily
     Dates: start: 20100225
  4. LISINOPRIL [Concomitant]
     Indication: HYPERTENSION
     Dosage: 10 mg, alternate day

REACTIONS (1)
  - Corneal dystrophy [Recovered/Resolved with Sequelae]
